FAERS Safety Report 9434548 (Version 1)
Quarter: 2013Q3

REPORT INFORMATION
  Report Type: Spontaneous
  Country: US (occurrence: US)
  Receive Date: 20130801
  Receipt Date: 20130801
  Transmission Date: 20140515
  Serious: No
  Sender: FDA-Public Use
  Company Number: US-PFIZER INC-2013223945

PATIENT
  Age: 59 Year
  Sex: Female
  Weight: 113 kg

DRUGS (4)
  1. PRISTIQ [Suspect]
     Indication: DEPRESSION
     Dosage: 50MG DAILY
  2. PRISTIQ [Suspect]
     Indication: ANXIETY
  3. LYRICA [Suspect]
     Indication: NEUROPATHY PERIPHERAL
     Dosage: 75MG DAILY
     Dates: start: 2012
  4. NEURONTIN [Concomitant]
     Indication: NEUROPATHY PERIPHERAL
     Dosage: 400 MG, 2X/DAY

REACTIONS (1)
  - Trigger finger [Recovering/Resolving]
